FAERS Safety Report 9994359 (Version 7)
Quarter: 2020Q4

REPORT INFORMATION
  Report Type: Other
  Country: PT (occurrence: PT)
  Receive Date: 20140311
  Receipt Date: 20201026
  Transmission Date: 20210114
  Serious: Yes (Other)
  Sender: FDA-Public Use
  Company Number: PT-ROCHE-1309751

PATIENT
  Age: 72 Year
  Sex: Male

DRUGS (1)
  1. ALTEPLASE. [Suspect]
     Active Substance: ALTEPLASE
     Indication: ISCHAEMIC STROKE
     Route: 042

REACTIONS (5)
  - Myoclonus [Recovered/Resolved]
  - Renal impairment [Unknown]
  - Monoparesis [Unknown]
  - Cerebral infarction [Unknown]
  - Haemorrhagic transformation stroke [Unknown]
